FAERS Safety Report 21663610 (Version 3)
Quarter: 2023Q1

REPORT INFORMATION
  Report Type: Report from Study
  Country: US (occurrence: US)
  Receive Date: 20221130
  Receipt Date: 20230220
  Transmission Date: 20230418
  Serious: No
  Sender: FDA-Public Use
  Company Number: US-BIOVITRUM-2022US13679

PATIENT
  Sex: Female

DRUGS (1)
  1. KINERET [Suspect]
     Active Substance: ANAKINRA
     Indication: Rheumatoid arthritis
     Dates: start: 20221028

REACTIONS (6)
  - Rash erythematous [Unknown]
  - Sinusitis [Recovered/Resolved]
  - Asthma [Unknown]
  - Eosinophil count increased [Unknown]
  - Injection site reaction [Unknown]
  - Product dose omission issue [Unknown]
